FAERS Safety Report 18639415 (Version 1)
Quarter: 2020Q4

REPORT INFORMATION
  Report Type: Report from Study
  Country: JP (occurrence: JP)
  Receive Date: 20201219
  Receipt Date: 20201219
  Transmission Date: 20210114
  Serious: Yes (Hospitalization)
  Sender: FDA-Public Use
  Company Number: JP-AMGEN-JPNCT2020205257

PATIENT
  Age: 79 Year
  Sex: Male

DRUGS (26)
  1. DARBEPOETIN ALFA [Suspect]
     Active Substance: DARBEPOETIN ALFA
     Dosage: 240 MICROGRAM
     Route: 058
     Dates: start: 20180723, end: 20180723
  2. DARBEPOETIN ALFA [Suspect]
     Active Substance: DARBEPOETIN ALFA
     Dosage: 240 MICROGRAM, Q2WK
     Route: 058
     Dates: start: 20190110, end: 20190221
  3. SOLU-CORTEF [Concomitant]
     Active Substance: HYDROCORTISONE SODIUM SUCCINATE
     Indication: MYELODYSPLASTIC SYNDROME
     Dosage: 100 MG
     Route: 065
  4. AMLODIPINE [Concomitant]
     Active Substance: AMLODIPINE BESYLATE
     Indication: HYPERTENSION
     Dosage: 10 MG
     Route: 048
  5. AZILVA [Concomitant]
     Active Substance: AZILSARTAN KAMEDOXOMIL
     Indication: HYPERTENSION
     Dosage: 40 MG
     Route: 048
  6. ALFACALCIDOL [Concomitant]
     Active Substance: ALFACALCIDOL
     Indication: OSTEOPOROSIS
     Dosage: 1 UG
     Route: 048
  7. DAIKENCHUTO [Concomitant]
     Active Substance: HERBALS
     Indication: IRRITABLE BOWEL SYNDROME
     Dosage: 7.5 GRAM
     Route: 048
  8. DARBEPOETIN ALFA [Suspect]
     Active Substance: DARBEPOETIN ALFA
     Dosage: 240 MICROGRAM, Q2WK
     Route: 058
     Dates: start: 20180510, end: 20180702
  9. ENTECAVIR. [Concomitant]
     Active Substance: ENTECAVIR
     Indication: HEPATITIS B VIRUS TEST POSITIVE
     Dosage: 0.5 MG
     Route: 048
  10. SANACTASE [Concomitant]
     Active Substance: AMYLASE
     Indication: IRRITABLE BOWEL SYNDROME
     Dosage: 3 DF
     Route: 048
  11. BIO-THREE [Concomitant]
     Active Substance: HERBALS
     Indication: IRRITABLE BOWEL SYNDROME
     Dosage: 3 DF
     Route: 048
  12. TAZOPIPE [Concomitant]
     Active Substance: PIPERACILLIN SODIUM\TAZOBACTAM SODIUM
     Dosage: 13.5 G
     Route: 065
     Dates: start: 20180918, end: 20180919
  13. MECOBALAMIN [Concomitant]
     Active Substance: METHYLCOBALAMIN
     Indication: MYELODYSPLASTIC SYNDROME
     Dosage: 2000 UG
     Route: 048
  14. DARBEPOETIN ALFA [Suspect]
     Active Substance: DARBEPOETIN ALFA
     Indication: MYELODYSPLASTIC SYNDROME
     Dosage: 240 MICROGRAM
     Route: 058
     Dates: start: 20180910
  15. DARBEPOETIN ALFA [Suspect]
     Active Substance: DARBEPOETIN ALFA
     Dosage: 240 MICROGRAM, Q4WK
     Route: 058
     Dates: start: 20181023, end: 20181120
  16. DARBEPOETIN ALFA [Suspect]
     Active Substance: DARBEPOETIN ALFA
     Dosage: 240 MICROGRAM, Q2WK
     Route: 058
     Dates: start: 20181206, end: 20181220
  17. TAZOPIPE [Concomitant]
     Active Substance: PIPERACILLIN SODIUM\TAZOBACTAM SODIUM
     Indication: FEBRILE NEUTROPENIA
     Dosage: 18 G
     Route: 065
     Dates: end: 20180510
  18. VIDAZA [Concomitant]
     Active Substance: AZACITIDINE
     Indication: MYELODYSPLASTIC SYNDROME
     Dosage: 110 MG
     Route: 065
     Dates: end: 20180914
  19. CEFEPIME DIHYDROCHLORIDE [Concomitant]
     Active Substance: CEFEPIME HYDROCHLORIDE
     Dosage: 2 G
     Route: 065
     Dates: start: 20180916, end: 20180918
  20. DARBEPOETIN ALFA [Suspect]
     Active Substance: DARBEPOETIN ALFA
     Dosage: 240 MICROGRAM, Q2WK
     Route: 058
     Dates: start: 20180809, end: 20180823
  21. DARBEPOETIN ALFA [Suspect]
     Active Substance: DARBEPOETIN ALFA
     Dosage: 240 MICROGRAM
     Route: 058
     Dates: start: 20181004, end: 20181004
  22. DARBEPOETIN ALFA [Suspect]
     Active Substance: DARBEPOETIN ALFA
     Dosage: 240 MICROGRAM, Q2WK
     Route: 058
     Dates: start: 20190401
  23. PLATELETS [Concomitant]
     Active Substance: HUMAN PLATELET, ALLOGENIC
     Indication: MYELODYSPLASTIC SYNDROME
     Dosage: 10 IU
     Route: 065
  24. POLARAMINE [Concomitant]
     Active Substance: DEXCHLORPHENIRAMINE MALEATE
     Indication: MYELODYSPLASTIC SYNDROME
     Dosage: 5 MG
     Route: 065
  25. GRANISETRON [Concomitant]
     Active Substance: GRANISETRON
     Indication: MYELODYSPLASTIC SYNDROME
     Dosage: 1 MG
     Route: 065
     Dates: end: 20180914
  26. POTASSIUM ASPARTATE [Concomitant]
     Active Substance: POTASSIUM ASPARTATE
     Indication: OSTEOPOROSIS
     Dosage: 200 MG
     Route: 048

REACTIONS (2)
  - Epstein-Barr virus test positive [Recovered/Resolved]
  - Pyrexia [Recovering/Resolving]

NARRATIVE: CASE EVENT DATE: 20180915
